FAERS Safety Report 24932953 (Version 1)
Quarter: 2025Q1

REPORT INFORMATION
  Report Type: Report from Study
  Country: US (occurrence: US)
  Receive Date: 20250205
  Receipt Date: 20250205
  Transmission Date: 20250408
  Serious: Yes (Other)
  Sender: ABBVIE
  Company Number: US-ABBVIE-5995266

PATIENT
  Age: 29 Year
  Sex: Female

DRUGS (2)
  1. SKYRIZI [Suspect]
     Active Substance: RISANKIZUMAB-RZAA
     Indication: Crohn^s disease
     Route: 058
     Dates: start: 20240815
  2. SKYRIZI [Suspect]
     Active Substance: RISANKIZUMAB-RZAA
     Route: 058

REACTIONS (5)
  - Intestinal resection [Recovering/Resolving]
  - Maternal exposure during pregnancy [Unknown]
  - Injection site pain [Recovered/Resolved]
  - Live birth [Unknown]
  - Injection site papule [Recovering/Resolving]

NARRATIVE: CASE EVENT DATE: 20240101
